FAERS Safety Report 25635371 (Version 1)
Quarter: 2025Q3

REPORT INFORMATION
  Report Type: Spontaneous
  Country: MX (occurrence: MX)
  Receive Date: 20250802
  Receipt Date: 20250802
  Transmission Date: 20251021
  Serious: Yes (Other)
  Sender: UNITED THERAPEUTICS
  Company Number: MX-UNITED THERAPEUTICS-UNT-2025-026245

PATIENT
  Age: 36 Year
  Weight: 58 kg

DRUGS (2)
  1. REMODULIN [Suspect]
     Active Substance: TREPROSTINIL
     Indication: Pulmonary arterial hypertension
  2. REMODULIN [Suspect]
     Active Substance: TREPROSTINIL

REACTIONS (3)
  - Pericardial effusion [Unknown]
  - Hypertension [Recovering/Resolving]
  - Device leakage [Unknown]
